FAERS Safety Report 17329832 (Version 2)
Quarter: 2020Q1

REPORT INFORMATION
  Report Type: Report from Study
  Country: CA (occurrence: CA)
  Receive Date: 20200128
  Receipt Date: 20200312
  Transmission Date: 20200409
  Serious: Yes (Other)
  Sender: FDA-Public Use
  Company Number: CA-JNJFOC-20190919673

PATIENT
  Age: 15 Year
  Sex: Female
  Weight: 42.3 kg

DRUGS (1)
  1. REMICADE [Suspect]
     Active Substance: INFLIXIMAB
     Indication: CROHN^S DISEASE
     Dosage: ON 13-SEP-2019 AND 16-JAN-2020 INLIXIMAB, RECOMBINANT INFUSION WAS RECEIVED.?ON 28-FEB-2020, THE PAT
     Route: 042
     Dates: start: 20180311

REACTIONS (3)
  - Abdominal pain [Not Recovered/Not Resolved]
  - Viral infection [Recovered/Resolved]
  - Diarrhoea [Unknown]

NARRATIVE: CASE EVENT DATE: 20191227
